FAERS Safety Report 5701077-3 (Version None)
Quarter: 2008Q2

REPORT INFORMATION
  Report Type: 
  Country: None (occurrence: None)
  Receive Date: 20080410
  Receipt Date: 20080327
  Transmission Date: 20081010
  Serious: Yes (Life-Threatening, Other)
  Sender: FDA-Public Use
  Company Number: GB-AMGEN-US271977

PATIENT
  Age: 65 Year
  Sex: Female

DRUGS (9)
  1. ENBREL [Suspect]
     Indication: DRUG USE FOR UNKNOWN INDICATION
     Dosage: UNKNOWN
     Route: 065
     Dates: end: 20071101
  2. HUMIRA [Suspect]
     Dosage: UNKNOWN
     Route: 065
  3. BISOPROLOL FUMARATE [Concomitant]
     Dosage: UNKNOWN
     Route: 065
  4. CO-AMILOFRUSE [Concomitant]
     Dosage: UNKNOWN
     Route: 065
  5. WARFARIN SODIUM [Concomitant]
     Dosage: UNKNOWN
     Route: 065
  6. DIGOXIN [Concomitant]
     Dosage: UNKNOWN
     Route: 065
  7. PREDNISOLONE [Concomitant]
     Dosage: UNKNOWN
     Route: 065
  8. LEVOTHYROXINE SODIUM [Concomitant]
     Dosage: UNKNOWN
     Route: 065
  9. CO-CODAMOL [Concomitant]
     Dosage: UNKNOWN
     Route: 065

REACTIONS (1)
  - RECTAL CANCER [None]
